FAERS Safety Report 5706166-5 (Version None)
Quarter: 2008Q2

REPORT INFORMATION
  Report Type: 
  Country: None (occurrence: None)
  Receive Date: 20080415
  Receipt Date: 20080410
  Transmission Date: 20081010
  Serious: Yes (Death, Other)
  Sender: FDA-Public Use
  Company Number: ES-PFIZER INC-2008031439

PATIENT
  Age: 34 Year
  Sex: Male

DRUGS (4)
  1. BESITRAN [Suspect]
     Indication: DEPRESSION
     Route: 048
     Dates: start: 20080101, end: 20080207
  2. LORAZEPAM [Suspect]
     Indication: INSOMNIA
     Route: 048
     Dates: start: 20080101, end: 20080207
  3. LABILENO [Concomitant]
     Indication: CONVULSION
     Route: 048
  4. QUETIAPINE FUMARATE [Concomitant]
     Indication: ANOREXIA NERVOSA
     Route: 048

REACTIONS (4)
  - CARDIO-RESPIRATORY ARREST [None]
  - HEPATOTOXICITY [None]
  - PULMONARY EMBOLISM [None]
  - RENAL FAILURE ACUTE [None]
